FAERS Safety Report 20628672 (Version 1)
Quarter: 2022Q1

REPORT INFORMATION
  Report Type: Spontaneous
  Country: IN (occurrence: IN)
  Receive Date: 20220323
  Receipt Date: 20220323
  Transmission Date: 20220423
  Serious: Yes (Other)
  Sender: FDA-Public Use
  Company Number: IN-UCBSA-2022012556

PATIENT
  Age: 11 Year
  Sex: Male

DRUGS (6)
  1. KEPPRA [Suspect]
     Active Substance: LEVETIRACETAM
     Indication: Seizure
     Dosage: 20 MG/KG/DAY
  2. KEPPRA [Suspect]
     Active Substance: LEVETIRACETAM
     Dosage: 40 MG/KG/DAY
  3. LAMOTRIGINE [Suspect]
     Active Substance: LAMOTRIGINE
     Indication: Seizure
     Dosage: 2 MG/KG/DAY
  4. CLOBAZAM [Suspect]
     Active Substance: CLOBAZAM
     Indication: Seizure
     Dosage: 0.8 MG/KG/DAY
  5. CLOBAZAM [Suspect]
     Active Substance: CLOBAZAM
     Dosage: 1.4 MG/KG/DAY
  6. VALPROATE SODIUM [Suspect]
     Active Substance: VALPROATE SODIUM
     Indication: Seizure
     Dosage: 24 MG/KG/DAY

REACTIONS (3)
  - Seizure [Recovering/Resolving]
  - Status epilepticus [Recovered/Resolved]
  - Multiple-drug resistance [Unknown]
